FAERS Safety Report 5341938-0 (Version None)
Quarter: 2007Q2

REPORT INFORMATION
  Report Type: 
  Country: None (occurrence: None)
  Receive Date: 20070601
  Receipt Date: 20070522
  Transmission Date: 20071010
  Serious: Yes (Death)
  Sender: FDA-Public Use
  Company Number: JP-ROCHE-492580

PATIENT
  Age: 39 Year
  Sex: Male
  Weight: 104 kg

DRUGS (3)
  1. TAMIFLU [Suspect]
     Indication: UPPER RESPIRATORY TRACT INFLAMMATION
     Route: 048
     Dates: start: 20070303, end: 20070303
  2. TAMIFLU [Suspect]
     Route: 048
     Dates: start: 20070304, end: 20070304
  3. TAMIFLU [Suspect]
     Route: 048
     Dates: start: 20070305, end: 20070305

REACTIONS (18)
  - ACUTE RESPIRATORY DISTRESS SYNDROME [None]
  - ALTERED STATE OF CONSCIOUSNESS [None]
  - APALLIC SYNDROME [None]
  - ATELECTASIS [None]
  - BRAIN DEATH [None]
  - CONTINUOUS HAEMODIAFILTRATION [None]
  - DISSEMINATED INTRAVASCULAR COAGULATION [None]
  - DRUG INEFFECTIVE [None]
  - ENCEPHALITIS HERPES [None]
  - ENCEPHALITIS VIRAL [None]
  - HYPERKALAEMIA [None]
  - LIVER INJURY [None]
  - MULTI-ORGAN FAILURE [None]
  - PNEUMONIA [None]
  - RENAL FAILURE [None]
  - ROAD TRAFFIC ACCIDENT [None]
  - STAPHYLOCOCCAL INFECTION [None]
  - STATUS EPILEPTICUS [None]
